FAERS Safety Report 12643616 (Version 6)
Quarter: 2016Q4

REPORT INFORMATION
  Report Type: Spontaneous
  Country: US (occurrence: US)
  Receive Date: 20160811
  Receipt Date: 20161122
  Transmission Date: 20170207
  Serious: Yes (Congenital Anomaly, Other)
  Sender: FDA-Public Use
  Company Number: PHHY2015US127705

PATIENT
  Sex: Male

DRUGS (3)
  1. ZOFRAN [Suspect]
     Active Substance: ONDANSETRON HYDROCHLORIDE
     Indication: FOETAL EXPOSURE DURING PREGNANCY
     Dosage: UNK
     Route: 064
  2. ONDANSETRON [Suspect]
     Active Substance: ONDANSETRON
     Indication: FOETAL EXPOSURE DURING PREGNANCY
     Dosage: MOTHERS DOSE: 4 MG ONCE DAILY (QD)
     Route: 064
  3. ZOFRAN [Suspect]
     Active Substance: ONDANSETRON HYDROCHLORIDE
     Indication: FOETAL EXPOSURE DURING PREGNANCY
     Dosage: UNK
     Route: 064

REACTIONS (24)
  - Otitis media [Unknown]
  - Febrile convulsion [Unknown]
  - Wheezing [Unknown]
  - Asthma [Unknown]
  - Vomiting [Unknown]
  - Cough [Unknown]
  - Decreased appetite [Unknown]
  - Arthropod bite [Unknown]
  - Rash [Unknown]
  - Pruritus [Unknown]
  - Rhinorrhoea [Unknown]
  - Ear swelling [Unknown]
  - Dermatitis [Unknown]
  - Dyspnoea [Unknown]
  - Foetal exposure during pregnancy [Unknown]
  - Nasal congestion [Unknown]
  - Nasopharyngitis [Unknown]
  - Swelling face [Unknown]
  - Heart disease congenital [Unknown]
  - Cardiac murmur [Unknown]
  - Rhinalgia [Unknown]
  - Lacrimation increased [Unknown]
  - Skin papilloma [Unknown]
  - Upper respiratory tract infection [Unknown]
